FAERS Safety Report 12724008 (Version 1)
Quarter: 2016Q3

REPORT INFORMATION
  Report Type: Report from Study
  Country: PK (occurrence: PK)
  Receive Date: 20160908
  Receipt Date: 20160908
  Transmission Date: 20161109
  Serious: Yes (Death)
  Sender: FDA-Public Use
  Company Number: PHHY2016PK123119

PATIENT
  Age: 29 Year
  Sex: Female

DRUGS (1)
  1. GLIVEC [Suspect]
     Active Substance: IMATINIB MESYLATE
     Indication: GASTROINTESTINAL STROMAL TUMOUR
     Dosage: 600 MG, QD
     Route: 048
     Dates: start: 20150507

REACTIONS (4)
  - Blood glucose decreased [Fatal]
  - Diarrhoea [Fatal]
  - Mouth haemorrhage [Fatal]
  - Epistaxis [Fatal]

NARRATIVE: CASE EVENT DATE: 20160711
